FAERS Safety Report 4693546-2 (Version None)
Quarter: 2005Q2

REPORT INFORMATION
  Report Type: 
  Country: None (occurrence: None)
  Receive Date: 20050613
  Receipt Date: 20050225
  Transmission Date: 20051028
  Serious: No
  Sender: FDA-Public Use
  Company Number: 2004-00105

PATIENT
  Age: 64 Year
  Sex: Female
  Weight: 42.6 kg

DRUGS (3)
  1. VELCADE [Suspect]
     Indication: MULTIPLE MYELOMA
     Dosage: 1.40 MG, INTRAVENOUS;  1.60 MG, INTRAVENOUS
     Route: 042
     Dates: start: 20040606, end: 20040611
  2. VELCADE [Suspect]
     Indication: MULTIPLE MYELOMA
     Dosage: 1.40 MG, INTRAVENOUS;  1.60 MG, INTRAVENOUS
     Route: 042
     Dates: start: 20040615, end: 20040617
  3. DECADRON [Concomitant]

REACTIONS (4)
  - BURNING SENSATION [None]
  - PHLEBITIS SUPERFICIAL [None]
  - PRURITUS [None]
  - VEIN DISCOLOURATION [None]
